FAERS Safety Report 11009515 (Version 1)
Quarter: 2015Q2

REPORT INFORMATION
  Report Type: Spontaneous
  Country: FR (occurrence: FR)
  Receive Date: 20150410
  Receipt Date: 20150410
  Transmission Date: 20150821
  Serious: Yes (Hospitalization)
  Sender: FDA-Public Use
  Company Number: FR-JNJFOC-20150401647

PATIENT
  Age: 78 Year
  Sex: Female

DRUGS (11)
  1. XARELTO [Suspect]
     Active Substance: RIVAROXABAN
     Indication: CEREBROVASCULAR ACCIDENT PROPHYLAXIS
     Route: 048
     Dates: end: 20150303
  2. AZILECT [Concomitant]
     Active Substance: RASAGILINE MESYLATE
  3. INEXIUM [Concomitant]
     Active Substance: ESOMEPRAZOLE
  4. LEVOTHYROX [Concomitant]
     Active Substance: LEVOTHYROXINE
  5. DOLIPRANE [Concomitant]
     Active Substance: ACETAMINOPHEN
  6. TRIATEC [Concomitant]
     Active Substance: RAMIPRIL
  7. FUROSEMIDE. [Concomitant]
     Active Substance: FUROSEMIDE
  8. LYSANXIA [Concomitant]
     Active Substance: PRAZEPAM
  9. DIFFU K [Concomitant]
     Active Substance: POTASSIUM CHLORIDE
  10. XARELTO [Suspect]
     Active Substance: RIVAROXABAN
     Indication: ATRIAL FIBRILLATION
     Route: 048
     Dates: end: 20150303
  11. MODOPAR [Concomitant]
     Active Substance: BENSERAZIDE HYDROCHLORIDE\LEVODOPA

REACTIONS (1)
  - Acute kidney injury [Recovering/Resolving]

NARRATIVE: CASE EVENT DATE: 20150303
